FAERS Safety Report 7494505-7 (Version None)
Quarter: 2011Q2

REPORT INFORMATION
  Report Type: 
  Country: None (occurrence: None)
  Receive Date: 20110520
  Receipt Date: 20110506
  Transmission Date: 20111010
  Serious: Yes (Other)
  Sender: FDA-Public Use
  Company Number: PHHY2011FR39386

PATIENT
  Sex: Female

DRUGS (1)
  1. RASILEZ [Suspect]
     Dosage: UNK
     Dates: start: 20110221

REACTIONS (2)
  - WEIGHT DECREASED [None]
  - DECREASED APPETITE [None]
